FAERS Safety Report 4745968-9 (Version None)
Quarter: 2005Q3

REPORT INFORMATION
  Report Type: 
  Country: None (occurrence: None)
  Receive Date: 20050816
  Receipt Date: 20050720
  Transmission Date: 20060218
  Serious: Yes (Death, Hospitalization)
  Sender: FDA-Public Use
  Company Number: US-AMGEN-KDL143558

PATIENT
  Sex: Female

DRUGS (1)
  1. ENBREL [Suspect]
     Indication: RHEUMATOID ARTHRITIS
     Route: 058
     Dates: start: 20040601, end: 20050401

REACTIONS (7)
  - ARRHYTHMIA [None]
  - CARDIAC ARREST [None]
  - CHEST PAIN [None]
  - CORONARY ARTERY ATHEROSCLEROSIS [None]
  - CORONARY ARTERY STENOSIS [None]
  - HYPOPERFUSION [None]
  - KNEE ARTHROPLASTY [None]
